FAERS Safety Report 10070749 (Version 1)
Quarter: 2014Q2

REPORT INFORMATION
  Report Type: Spontaneous
  Country: US (occurrence: US)
  Receive Date: 20140410
  Receipt Date: 20140410
  Transmission Date: 20141212
  Serious: No
  Sender: FDA-Public Use
  Company Number: US-PFIZER INC-2014097360

PATIENT
  Age: 81 Year
  Sex: Female

DRUGS (5)
  1. GABAPENTIN [Suspect]
     Dosage: UNK
  2. SENOKOT-S [Suspect]
     Dosage: UNK
  3. OSCAL [Suspect]
     Dosage: UNK
  4. VITAMIN D3 [Suspect]
     Dosage: UNK
  5. MAGNESIUM [Suspect]
     Dosage: UNK

REACTIONS (4)
  - Oral discomfort [Unknown]
  - Glossodynia [Unknown]
  - Lip swelling [Unknown]
  - Swollen tongue [Unknown]
